FAERS Safety Report 8358191-6 (Version None)
Quarter: 2012Q2

REPORT INFORMATION
  Report Type: 
  Country: None (occurrence: None)
  Receive Date: 20120514
  Receipt Date: 20120504
  Transmission Date: 20120825
  Serious: Yes (Hospitalization, Congenital Anomaly)
  Sender: FDA-Public Use
  Company Number: US-GLAXOSMITHKLINE-A0977189A

PATIENT
  Sex: Male
  Weight: 3.2 kg

DRUGS (4)
  1. PAXIL [Suspect]
     Indication: DEPRESSION
     Dosage: 20MG PER DAY
     Route: 064
     Dates: start: 19990130
  2. CEFTIN [Concomitant]
  3. PROZAC [Concomitant]
     Dates: start: 19991015
  4. AMITRIPTYLINE HCL [Concomitant]
     Dates: start: 19990130

REACTIONS (3)
  - CLEFT LIP AND PALATE [None]
  - MICROSOMIA [None]
  - FOETAL EXPOSURE DURING PREGNANCY [None]
